FAERS Safety Report 6892113-X (Version None)
Quarter: 2010Q3

REPORT INFORMATION
  Report Type: 
  Country: None (occurrence: None)
  Receive Date: 20100731
  Receipt Date: 20080226
  Transmission Date: 20110219
  Serious: No
  Sender: FDA-Public Use
  Company Number: US-PFIZER INC-2007105270

PATIENT
  Sex: Male
  Weight: 95.5 kg

DRUGS (5)
  1. AMLODIPINE [Suspect]
     Indication: HYPERTENSION
     Route: 048
     Dates: start: 20070501
  2. ALL OTHER THERAPEUTIC PRODUCTS [Concomitant]
  3. DIAZEPAM [Concomitant]
  4. DRUG, UNSPECIFIED [Concomitant]
  5. MELOXICAM [Concomitant]

REACTIONS (5)
  - CHEST PAIN [None]
  - DYSPEPSIA [None]
  - GASTROOESOPHAGEAL REFLUX DISEASE [None]
  - VOMITING [None]
  - WEIGHT INCREASED [None]
